FAERS Safety Report 4719592-8 (Version None)
Quarter: 2005Q3

REPORT INFORMATION
  Report Type: 
  Country: None (occurrence: None)
  Receive Date: 20050721
  Receipt Date: 20040305
  Transmission Date: 20060218
  Serious: No
  Sender: FDA-Public Use
  Company Number: US-GLAXOSMITHKLINE-A0501593A

PATIENT
  Age: 69 Year
  Sex: Female
  Weight: 73.6 kg

DRUGS (6)
  1. AVANDIA [Suspect]
     Dosage: 8MG PER DAY
     Route: 048
     Dates: start: 19980101
  2. GLUCOPHAGE [Concomitant]
     Dosage: 1000MG TWICE PER DAY
     Route: 048
  3. GLUCOTROL XL [Concomitant]
     Dosage: 2.5MG PER DAY
     Route: 048
  4. LIPITOR [Concomitant]
     Indication: LIPIDS INCREASED
     Dosage: 80MG PER DAY
     Route: 048
  5. ZESTRIL [Concomitant]
     Indication: HYPERTENSION
     Dosage: 5MG UNKNOWN
     Route: 048
  6. TOPAMAX [Concomitant]
     Indication: SCIATICA
     Dosage: 50MG TWICE PER DAY
     Route: 048

REACTIONS (1)
  - MACULAR OEDEMA [None]
